FAERS Safety Report 6140172-4 (Version None)
Quarter: 2009Q2

REPORT INFORMATION
  Report Type: 
  Country: None (occurrence: None)
  Receive Date: 20090401
  Receipt Date: 20090323
  Transmission Date: 20091009
  Serious: Yes (Other)
  Sender: FDA-Public Use
  Company Number: AU-ABBOTT-08P-008-0474054-00

PATIENT
  Sex: Female
  Weight: 51.8 kg

DRUGS (6)
  1. HUMIRA [Suspect]
     Indication: CROHN'S DISEASE
     Dosage: FIRST DOSE
     Route: 058
     Dates: start: 20071105
  2. HUMIRA [Suspect]
     Dosage: SECOND DOSE
     Dates: start: 20071119, end: 20080416
  3. HUMIRA [Suspect]
     Dosage: X 4 INJECTIONS
     Dates: start: 20080416
  4. HUMIRA [Suspect]
     Dates: end: 20080828
  5. CONTRACEPTIVE PILL [Concomitant]
     Indication: DRUG USE FOR UNKNOWN INDICATION
  6. STEROID [Concomitant]
     Indication: DRUG USE FOR UNKNOWN INDICATION

REACTIONS (4)
  - ALOPECIA [None]
  - ASTHENIA [None]
  - INFLUENZA LIKE ILLNESS [None]
  - LYMPHADENOPATHY [None]
